FAERS Safety Report 23433457 (Version 1)
Quarter: 2024Q1

REPORT INFORMATION
  Report Type: Spontaneous
  Country: US (occurrence: None)
  Receive Date: 20240123
  Receipt Date: 20240123
  Transmission Date: 20240410
  Serious: Yes (Hospitalization, Other)
  Sender: FDA-Public Use
  Company Number: 2024A011815

PATIENT
  Sex: Male
  Weight: 102.1 kg

DRUGS (1)
  1. OMEPRAZOLE [Suspect]
     Active Substance: OMEPRAZOLE
     Indication: Gastrooesophageal reflux disease
     Route: 048

REACTIONS (4)
  - Transient ischaemic attack [Unknown]
  - Dysarthria [Unknown]
  - Feeling abnormal [Unknown]
  - Extra dose administered [Unknown]
